FAERS Safety Report 4941647-3 (Version None)
Quarter: 2006Q1

REPORT INFORMATION
  Report Type: 
  Country: None (occurrence: None)
  Receive Date: 20060313
  Receipt Date: 20060223
  Transmission Date: 20060701
  Serious: Yes (Other)
  Sender: FDA-Public Use
  Company Number: NL-ROCHE-438000

PATIENT
  Age: 62 Year
  Sex: Female

DRUGS (10)
  1. BONIVA [Suspect]
     Indication: DRUG USE FOR UNKNOWN INDICATION
     Route: 048
     Dates: start: 20060209
  2. SINTROM [Interacting]
     Indication: DRUG USE FOR UNKNOWN INDICATION
     Dosage: DOSE ADJUSTED.
     Route: 048
     Dates: start: 20060215
  3. SINTROM [Interacting]
     Route: 048
     Dates: start: 19980615, end: 20060215
  4. BUMETANIDE [Concomitant]
     Route: 048
     Dates: start: 19980615
  5. TRIAMTERENE [Concomitant]
     Route: 048
     Dates: start: 19980615
  6. CARVEDILOL [Concomitant]
     Route: 048
     Dates: start: 19980615
  7. RAMIPRIL [Concomitant]
     Route: 048
     Dates: start: 20020115
  8. ZOLPIDEM [Concomitant]
     Dosage: GIVEN ANTE NOCTEM.
     Route: 048
     Dates: start: 20000615
  9. OMEPRAZOLE [Concomitant]
     Route: 048
     Dates: start: 19980615
  10. UNCLASSIFIED DRUG [Concomitant]
     Dosage: CAD EFFERVESCENT  POWDER (CALCIUM CARBONATE 500MG/COLECALCIFEROL 440 IE).
     Dates: start: 20060210

REACTIONS (2)
  - DRUG INTERACTION [None]
  - INTERNATIONAL NORMALISED RATIO ABNORMAL [None]
